FAERS Safety Report 16635779 (Version 2)
Quarter: 2019Q3

REPORT INFORMATION
  Report Type: Spontaneous
  Country: CN (occurrence: CN)
  Receive Date: 20190726
  Receipt Date: 20190729
  Transmission Date: 20191004
  Serious: No
  Sender: FDA-Public Use
  Company Number: CN-ASTRAZENECA-2019SF05957

PATIENT
  Sex: Female

DRUGS (3)
  1. APATINIB MESYLATE [Concomitant]
     Active Substance: APATINIB
     Indication: LIVER DISORDER
     Route: 048
     Dates: end: 201903
  2. APATINIB MESYLATE [Concomitant]
     Active Substance: APATINIB
     Indication: GASTROINTESTINAL DISORDER
     Route: 048
     Dates: end: 201903
  3. LYNPARZA [Suspect]
     Active Substance: OLAPARIB
     Indication: OVARIAN EPITHELIAL CANCER
     Dosage: 300 MG EACH TIME
     Route: 048
     Dates: start: 2019, end: 201903

REACTIONS (1)
  - Anaemia [Unknown]
